FAERS Safety Report 20719624 (Version 1)
Quarter: 2022Q2

REPORT INFORMATION
  Report Type: Spontaneous
  Country: US (occurrence: US)
  Receive Date: 20220418
  Receipt Date: 20220418
  Transmission Date: 20220721
  Serious: No
  Sender: FDA-Public Use
  Company Number: US-NOVARTISTESTPH-NVSC2022US085405

PATIENT
  Sex: Male

DRUGS (2)
  1. CYCLOSPORINE [Suspect]
     Active Substance: CYCLOSPORINE
     Indication: Chronic spontaneous urticaria
     Dosage: UNK
     Route: 065
  2. DOXEPIN [Suspect]
     Active Substance: DOXEPIN
     Indication: Chronic spontaneous urticaria
     Dosage: UNK
     Route: 065

REACTIONS (1)
  - Drug ineffective [Not Recovered/Not Resolved]
